FAERS Safety Report 4699566-6 (Version None)
Quarter: 2005Q2

REPORT INFORMATION
  Report Type: 
  Country: None (occurrence: None)
  Receive Date: 20050622
  Receipt Date: 20050609
  Transmission Date: 20051028
  Serious: Yes (Hospitalization)
  Sender: FDA-Public Use
  Company Number: HQWYE339709JUN05

PATIENT
  Age: 29 Year
  Sex: Male

DRUGS (4)
  1. ADVIL [Suspect]
     Indication: NECK PAIN
     Dosage: 3 TABLETS PER DAY, ORAL
     Route: 048
     Dates: start: 20050509
  2. KETOPROFEN [Suspect]
     Indication: NECK PAIN
     Dates: start: 20050512, end: 20050512
  3. DEXTROPROPXYPHENE/PARACETAMOL (DEXTROPROPOXYPHENE /PARACETAMOL, ) [Suspect]
     Indication: NECK PAIN
     Dates: start: 20050514, end: 20050516
  4. IPRIM (PARACETAMOL/TRAMADOL HYDROCHLORIDE, ) [Suspect]
     Indication: NECK PAIN
     Dates: start: 20050512, end: 20050512

REACTIONS (8)
  - ANOREXIA [None]
  - CONSTIPATION [None]
  - FLATULENCE [None]
  - GASTROINTESTINAL DISORDER [None]
  - NEPHRITIS [None]
  - PROCTALGIA [None]
  - RENAL FAILURE ACUTE [None]
  - VOMITING [None]
